FAERS Safety Report 6533840-3 (Version None)
Quarter: 2010Q1

REPORT INFORMATION
  Report Type: 
  Country: None (occurrence: None)
  Receive Date: 20100111
  Receipt Date: 20090730
  Transmission Date: 20100710
  Serious: Yes (Hospitalization)
  Sender: FDA-Public Use
  Company Number: US-ABBOTT-09P-163-0588238-00

PATIENT
  Sex: Male
  Weight: 98 kg

DRUGS (4)
  1. VICODIN [Suspect]
     Indication: PAIN
     Route: 065
  2. FTY720 (BLINDED) [Suspect]
     Indication: MULTIPLE SCLEROSIS
     Dates: start: 20070711, end: 20090323
  3. FTY720 (BLINDED) [Suspect]
     Dates: start: 20090330
  4. SOMA [Suspect]
     Indication: PAIN
     Route: 065

REACTIONS (1)
  - DRUG DEPENDENCE [None]
